FAERS Safety Report 7444351-5 (Version None)
Quarter: 2011Q2

REPORT INFORMATION
  Report Type: 
  Country: None (occurrence: None)
  Receive Date: 20110429
  Receipt Date: 20110415
  Transmission Date: 20111010
  Serious: Yes (Other)
  Sender: FDA-Public Use
  Company Number: AU-RANBAXY-2011RR-43298

PATIENT
  Age: 46 Year
  Sex: Male

DRUGS (3)
  1. ESCITALOPRAM [Concomitant]
     Dosage: 10 MG, UNK
  2. QUETIAPINE [Suspect]
     Indication: AGITATION
     Dosage: 50 MG, SINGLE
  3. IRBESARTAN AND HYDROCHLOROTHIAZIDE [Suspect]
     Indication: HYPERTENSION
     Dosage: 300/12.5 MG/DAY

REACTIONS (2)
  - DRUG INTERACTION [None]
  - HYPOTENSION [None]
